FAERS Safety Report 18475041 (Version 2)
Quarter: 2021Q1

REPORT INFORMATION
  Report Type: Spontaneous
  Country: US (occurrence: US)
  Receive Date: 20201106
  Receipt Date: 20210302
  Transmission Date: 20210419
  Serious: Yes (Other)
  Sender: FDA-Public Use
  Company Number: US-ASTRAZENECA-2018SF65671

PATIENT
  Age: 22584 Day
  Sex: Male

DRUGS (37)
  1. ASPIRIN. [Concomitant]
     Active Substance: ASPIRIN
  2. CLONAZEPAM. [Concomitant]
     Active Substance: CLONAZEPAM
  3. ABILIFY [Concomitant]
     Active Substance: ARIPIPRAZOLE
  4. TIZANIDINE. [Concomitant]
     Active Substance: TIZANIDINE
  5. HUMALOG [Concomitant]
     Active Substance: INSULIN LISPRO
  6. DOXEPIN [Concomitant]
     Active Substance: DOXEPIN
  7. SENNA [Concomitant]
     Active Substance: SENNA LEAF\SENNOSIDES\SENNOSIDES A AND B
  8. MAGNESIUM OXIDE. [Concomitant]
     Active Substance: MAGNESIUM OXIDE
  9. METFORMIN HYDROCHLORIDE. [Concomitant]
     Active Substance: METFORMIN HYDROCHLORIDE
  10. SEROQUEL [Concomitant]
     Active Substance: QUETIAPINE FUMARATE
  11. LANTUS [Concomitant]
     Active Substance: INSULIN GLARGINE
  12. GLIPIZIDE. [Concomitant]
     Active Substance: GLIPIZIDE
  13. LIPITOR [Concomitant]
     Active Substance: ATORVASTATIN CALCIUM
  14. ZOLPIDEM TARTRATE. [Concomitant]
     Active Substance: ZOLPIDEM TARTRATE
  15. NORTRIPTYLINE [Concomitant]
     Active Substance: NORTRIPTYLINE
  16. DIAZEPAM. [Concomitant]
     Active Substance: DIAZEPAM
  17. HYDROCODONE [Concomitant]
     Active Substance: HYDROCODONE
  18. ALCOHOL. [Concomitant]
     Active Substance: ALCOHOL
  19. IBUPROFEN. [Concomitant]
     Active Substance: IBUPROFEN
  20. TYLENOL [Concomitant]
     Active Substance: ACETAMINOPHEN
  21. LOSARTAN. [Concomitant]
     Active Substance: LOSARTAN
  22. SALINE [Concomitant]
     Active Substance: SODIUM CHLORIDE
  23. NEXIUM [Suspect]
     Active Substance: ESOMEPRAZOLE MAGNESIUM
     Indication: ABDOMINAL DISCOMFORT
     Dosage: 40.0MG UNKNOWN
     Route: 048
     Dates: start: 2003, end: 2016
  24. DIOVAN [Concomitant]
     Active Substance: VALSARTAN
  25. EFFEXOR [Concomitant]
     Active Substance: VENLAFAXINE HYDROCHLORIDE
  26. WELCHOL [Concomitant]
     Active Substance: COLESEVELAM HYDROCHLORIDE
  27. MELOXICAM. [Concomitant]
     Active Substance: MELOXICAM
  28. TRAMADOL. [Concomitant]
     Active Substance: TRAMADOL
  29. METFORMIN [Concomitant]
     Active Substance: METFORMIN HYDROCHLORIDE
  30. OXYCODONE [Concomitant]
     Active Substance: OXYCODONE
  31. VOLTAREN [Concomitant]
     Active Substance: DICLOFENAC SODIUM
  32. XYLOCAINE [Concomitant]
     Active Substance: LIDOCAINE HYDROCHLORIDE
  33. VITAMIN C [Concomitant]
     Active Substance: ASCORBIC ACID
  34. GABAPENTIN. [Concomitant]
     Active Substance: GABAPENTIN
  35. PAXIL [Concomitant]
     Active Substance: PAROXETINE HYDROCHLORIDE
  36. CIALIS [Concomitant]
     Active Substance: TADALAFIL
  37. CALCIUM [Concomitant]
     Active Substance: CALCIUM

REACTIONS (2)
  - Acute kidney injury [Not Recovered/Not Resolved]
  - Chronic kidney disease [Unknown]

NARRATIVE: CASE EVENT DATE: 20160712
